FAERS Safety Report 21254126 (Version 1)
Quarter: 2022Q3

REPORT INFORMATION
  Report Type: Spontaneous
  Country: FR (occurrence: FR)
  Receive Date: 20220825
  Receipt Date: 20220825
  Transmission Date: 20221027
  Serious: Yes (Other)
  Sender: FDA-Public Use
  Company Number: FR-VELOXIS PHARMACEUTICALS-2022VELFR-000543

PATIENT
  Age: 68 Year
  Sex: Male

DRUGS (3)
  1. TACROLIMUS [Interacting]
     Active Substance: TACROLIMUS
     Indication: COVID-19
     Dosage: UNK
     Dates: start: 2020, end: 2020
  2. LOPINAVIR\RITONAVIR [Interacting]
     Active Substance: LOPINAVIR\RITONAVIR
     Indication: COVID-19
     Dosage: UNK
     Route: 048
     Dates: start: 2020, end: 2020
  3. AZITHROMYCIN [Interacting]
     Active Substance: AZITHROMYCIN
     Indication: COVID-19
     Dosage: UNK
     Dates: start: 2020, end: 2020

REACTIONS (11)
  - Depressed level of consciousness [Unknown]
  - Acute kidney injury [Unknown]
  - Drug interaction [Unknown]
  - Patient uncooperative [Unknown]
  - Motor dysfunction [Unknown]
  - Overdose [Unknown]
  - Confusional state [Unknown]
  - Product use in unapproved indication [Unknown]
  - Off label use [Unknown]
  - Off label use [Unknown]
  - Off label use [Unknown]

NARRATIVE: CASE EVENT DATE: 20200101
